FAERS Safety Report 6734470-0 (Version None)
Quarter: 2010Q2

REPORT INFORMATION
  Report Type: 
  Country: None (occurrence: None)
  Receive Date: 20100520
  Receipt Date: 20100507
  Transmission Date: 20101027
  Serious: Yes (Hospitalization)
  Sender: FDA-Public Use
  Company Number: US-ELI_LILLY_AND_COMPANY-US201003002033

PATIENT
  Sex: Male

DRUGS (4)
  1. EFFIENT [Suspect]
     Indication: CORONARY ARTERY OCCLUSION
     Dosage: 60 MG, UNK
     Route: 065
     Dates: start: 20100214
  2. EFFIENT [Suspect]
     Dosage: 10 MG, DAILY (1/D)
     Route: 065
     Dates: start: 20100215, end: 20100228
  3. ASPIRIN [Concomitant]
  4. ANGIOMAX [Concomitant]

REACTIONS (3)
  - HAEMOLYTIC URAEMIC SYNDROME [None]
  - THROMBOTIC THROMBOCYTOPENIC PURPURA [None]
  - VASCULAR PSEUDOANEURYSM [None]
